FAERS Safety Report 9121491 (Version 1)
Quarter: 2013Q1

REPORT INFORMATION
  Report Type: Spontaneous
  Country: US (occurrence: US)
  Receive Date: 20130225
  Receipt Date: 20130225
  Transmission Date: 20140127
  Serious: No
  Sender: FDA-Public Use
  Company Number: US-ENDO PHARMACEUTICALS INC.-FORT20110063

PATIENT
  Age: 44 None
  Sex: Male
  Weight: 106.69 kg

DRUGS (7)
  1. FORTESTA [Suspect]
     Indication: HORMONE REPLACEMENT THERAPY
     Route: 061
     Dates: start: 201108, end: 2011
  2. XANAX [Concomitant]
     Indication: ANXIETY
     Route: 048
  3. XANAX [Concomitant]
     Indication: INSOMNIA
  4. REMERON [Concomitant]
     Indication: ANXIETY
     Route: 048
  5. REMERON [Concomitant]
     Indication: INSOMNIA
  6. RESTORIL [Concomitant]
     Indication: ANXIETY
     Route: 065
  7. RESTORIL [Concomitant]
     Indication: INSOMNIA

REACTIONS (2)
  - Application site exfoliation [Not Recovered/Not Resolved]
  - Application site rash [Recovered/Resolved]
